FAERS Safety Report 22972905 (Version 2)
Quarter: 2023Q4

REPORT INFORMATION
  Report Type: Report from Study
  Country: JP (occurrence: None)
  Receive Date: 20230922
  Receipt Date: 20231006
  Transmission Date: 20240110
  Serious: No
  Sender: FDA-Public Use
  Company Number: 2023A210893

PATIENT
  Age: 77 Year
  Sex: Male
  Weight: 41 kg

DRUGS (20)
  1. EVUSHELD [Suspect]
     Active Substance: CILGAVIMAB\TIXAGEVIMAB
     Indication: COVID-19 prophylaxis
     Dosage: TIXAGEVIMAB (300 MG) AND CILGAVIMAB (300 MG)
     Route: 030
     Dates: start: 20230721
  2. SULFAMETHOXAZOLE\TRIMETHOPRIM [Suspect]
     Active Substance: SULFAMETHOXAZOLE\TRIMETHOPRIM
     Indication: Prophylaxis
     Dosage: DOSE UNKNOWN
     Route: 048
  3. DAPAGLIFLOZIN [Concomitant]
     Active Substance: DAPAGLIFLOZIN
     Indication: Type 2 diabetes mellitus
     Dosage: DOSE UNKNOWN
     Route: 048
  4. URSODIOL [Concomitant]
     Active Substance: URSODIOL
     Indication: Primary biliary cholangitis
     Dosage: DOSE UNKNOWN
     Route: 048
  5. EZETIMIBE [Concomitant]
     Active Substance: EZETIMIBE
     Indication: Dyslipidaemia
     Dosage: DOSE UNKNOWN
     Route: 048
  6. ASPIRIN [Concomitant]
     Active Substance: ASPIRIN
     Indication: Acute myocardial infarction
     Dosage: DOSE UNKNOWN
     Route: 048
  7. VALACYCLOVIR HYDROCHLORIDE [Concomitant]
     Active Substance: VALACYCLOVIR HYDROCHLORIDE
     Indication: Prophylaxis
     Dosage: DOSE UNKNOWN
     Route: 048
  8. LANSOPRAZOLE [Concomitant]
     Active Substance: LANSOPRAZOLE
     Indication: Prophylaxis
     Dosage: DOSE UNKNOWN
     Route: 048
  9. ROSUVASTATIN CALCIUM [Concomitant]
     Active Substance: ROSUVASTATIN CALCIUM
     Indication: Dyslipidaemia
     Dosage: DOSE UNKNOWN
     Route: 048
  10. MAGNESIUM OXIDE [Concomitant]
     Active Substance: MAGNESIUM OXIDE
     Indication: Constipation
     Dosage: DOSE UNKNOWN
     Route: 048
  11. INSULIN GLARGINE [Concomitant]
     Active Substance: INSULIN GLARGINE
     Indication: Type 2 diabetes mellitus
     Dosage: DOSE UNKNOWN
     Route: 065
  12. VICTOZA [Concomitant]
     Active Substance: LIRAGLUTIDE
     Indication: Type 2 diabetes mellitus
     Dosage: DOSE UNKNOWN
     Route: 058
  13. FILGRASTIM [Concomitant]
     Active Substance: FILGRASTIM
     Indication: Prophylaxis
     Dosage: DOSE UNKNOWN
     Route: 065
  14. GRANISETRON [Concomitant]
     Active Substance: GRANISETRON
     Indication: Prophylaxis
     Dosage: DOSE UNKNOWN
     Route: 041
     Dates: start: 20230809, end: 20230810
  15. BENDAMUSTINE HYDROCHLORIDE [Concomitant]
     Active Substance: BENDAMUSTINE HYDROCHLORIDE
     Indication: Diffuse large B-cell lymphoma
     Dosage: DOSE UNKNOWN
     Route: 041
     Dates: start: 20230809, end: 20230810
  16. DEXAMETHASONE SODIUM PHOSPHATE [Concomitant]
     Active Substance: DEXAMETHASONE SODIUM PHOSPHATE
     Indication: Diffuse large B-cell lymphoma
     Dosage: DOSE UNKNOWN
     Route: 065
     Dates: start: 20230809, end: 20230810
  17. POLIVY [Concomitant]
     Active Substance: POLATUZUMAB VEDOTIN-PIIQ
     Indication: Diffuse large B-cell lymphoma
     Dosage: DOSE UNKNOWN
     Route: 041
     Dates: start: 20230809, end: 20230809
  18. RITUXIMAB BS[BIOSIMILAR 1] [Concomitant]
     Indication: Diffuse large B-cell lymphoma
     Dosage: DOSE UNKNOWN
     Route: 041
     Dates: start: 20230809, end: 20230809
  19. POLARAMINE [Concomitant]
     Active Substance: DEXCHLORPHENIRAMINE MALEATE
     Indication: Prophylaxis
     Dosage: DOSE UNKNOWN
     Route: 065
     Dates: start: 20230809, end: 20230809
  20. HYDROCORTONE [Concomitant]
     Active Substance: HYDROCORTISONE
     Indication: Prophylaxis
     Dosage: DOSE UNKNOWN
     Dates: start: 20230809, end: 20230809

REACTIONS (1)
  - Drug eruption [Recovered/Resolved]

NARRATIVE: CASE EVENT DATE: 20230808
